FAERS Safety Report 9364544 (Version 4)
Quarter: 2014Q1

REPORT INFORMATION
  Report Type: Spontaneous
  Country: BE (occurrence: BE)
  Receive Date: 20130624
  Receipt Date: 20140207
  Transmission Date: 20141002
  Serious: Yes (Hospitalization)
  Sender: FDA-Public Use
  Company Number: BE-AMGEN-BELSP2013043804

PATIENT
  Age: 63 Year
  Sex: Female
  Weight: 53.5 kg

DRUGS (3)
  1. PROLIA [Suspect]
     Indication: HYPERPARATHYROIDISM PRIMARY
     Dosage: UNK
     Route: 065
     Dates: start: 20130412
  2. PROLIA [Suspect]
     Indication: OSTEOPOROSIS
  3. D-CURE [Concomitant]
     Indication: VITAMIN D DEFICIENCY
     Dosage: AMP, 1*/SEM
     Route: 048
     Dates: start: 201303

REACTIONS (6)
  - Parathyroid tumour benign [Recovered/Resolved]
  - Calcium deficiency [Recovered/Resolved]
  - Adverse drug reaction [Unknown]
  - Paraesthesia [Not Recovered/Not Resolved]
  - Muscle spasms [Unknown]
  - Muscle twitching [Unknown]
